FAERS Safety Report 13559288 (Version 2)
Quarter: 2017Q2

REPORT INFORMATION
  Report Type: Spontaneous
  Country: GB (occurrence: GB)
  Receive Date: 20170518
  Receipt Date: 20170524
  Transmission Date: 20170830
  Serious: Yes (Other)
  Sender: FDA-Public Use
  Company Number: GB-PFIZER INC-2017215950

PATIENT
  Age: 41 Year
  Sex: Male

DRUGS (3)
  1. LYRICA [Suspect]
     Active Substance: PREGABALIN
     Indication: ANXIETY
     Dosage: 150 MG, UNK
     Dates: end: 201701
  2. LYRICA [Suspect]
     Active Substance: PREGABALIN
     Dosage: 150 UNK,
  3. LYRICA [Suspect]
     Active Substance: PREGABALIN
     Dosage: 300 MG, UNK
     Dates: start: 201701

REACTIONS (9)
  - Nystagmus [Unknown]
  - Abasia [Not Recovered/Not Resolved]
  - Feeling abnormal [Not Recovered/Not Resolved]
  - Hyperacusis [Unknown]
  - Tinnitus [Not Recovered/Not Resolved]
  - Dizziness [Unknown]
  - Vestibular disorder [Not Recovered/Not Resolved]
  - Vertigo [Unknown]
  - Bedridden [Unknown]

NARRATIVE: CASE EVENT DATE: 201701
